FAERS Safety Report 6154800-0 (Version None)
Quarter: 2009Q2

REPORT INFORMATION
  Report Type: 
  Country: None (occurrence: None)
  Receive Date: 20090414
  Receipt Date: 20090406
  Transmission Date: 20091009
  Serious: Yes (Other)
  Sender: FDA-Public Use
  Company Number: PHHY2009BR13107

PATIENT
  Sex: Male
  Weight: 74 kg

DRUGS (1)
  1. DIOVAN HCT [Suspect]
     Indication: HYPERTENSION
     Dosage: ONE TABLET DAILY IN THE MORNING
     Route: 048
     Dates: start: 20080801, end: 20090406

REACTIONS (5)
  - DYSPHONIA [None]
  - HAEMOPTYSIS [None]
  - OROPHARYNGEAL PAIN [None]
  - PHARYNGITIS [None]
  - VOCAL CORD DISORDER [None]
